FAERS Safety Report 18554085 (Version 2)
Quarter: 2021Q1

REPORT INFORMATION
  Report Type: Report from Study
  Country: US (occurrence: US)
  Receive Date: 20201127
  Receipt Date: 20210209
  Transmission Date: 20210419
  Serious: Yes (Hospitalization, Other)
  Sender: FDA-Public Use
  Company Number: US-TAKEDA-US202033113

PATIENT
  Sex: Female

DRUGS (4)
  1. GAMMAGARD S/D [Suspect]
     Active Substance: HUMAN IMMUNOGLOBULIN G
     Indication: IMMUNODEFICIENCY COMMON VARIABLE
     Route: 065
  2. GAMMAGARD S/D [Suspect]
     Active Substance: HUMAN IMMUNOGLOBULIN G
     Indication: PRIMARY IMMUNODEFICIENCY SYNDROME
  3. GAMMAGARD S/D [Suspect]
     Active Substance: HUMAN IMMUNOGLOBULIN G
     Indication: IMMUNODEFICIENCY COMMON VARIABLE
     Route: 065
  4. GAMMAGARD S/D [Suspect]
     Active Substance: HUMAN IMMUNOGLOBULIN G
     Indication: PRIMARY IMMUNODEFICIENCY SYNDROME

REACTIONS (15)
  - COVID-19 [Recovered/Resolved]
  - Chest injury [Recovered/Resolved]
  - Abnormal dreams [Recovered/Resolved]
  - Ill-defined disorder [Unknown]
  - Asthenia [Recovered/Resolved]
  - Meningitis aseptic [Unknown]
  - Burn of internal organs [Recovered/Resolved]
  - Musculoskeletal stiffness [Unknown]
  - Hallucination [Unknown]
  - Fall [Recovering/Resolving]
  - Rash maculo-papular [None]
  - Loss of consciousness [Recovered/Resolved]
  - Headache [Recovered/Resolved]
  - Taste disorder [Recovered/Resolved]
  - Dyspnoea [Unknown]
